FAERS Safety Report 5294558-0 (Version None)
Quarter: 2007Q2

REPORT INFORMATION
  Report Type: 
  Country: None (occurrence: None)
  Receive Date: 20070412
  Receipt Date: 20070406
  Transmission Date: 20071010
  Serious: Yes (Life-Threatening, Hospitalization)
  Sender: FDA-Public Use
  Company Number: US-JNJFOC-20070401274

PATIENT
  Age: 28 Year
  Sex: Male

DRUGS (4)
  1. ACETAMINOPHEN [Suspect]
  2. ACETAMINOPHEN [Suspect]
     Indication: INTENTIONAL DRUG MISUSE
  3. IBUPROFEN [Suspect]
  4. IBUPROFEN [Suspect]
     Indication: INTENTIONAL DRUG MISUSE
     Dosage: DOSE UNKNOWN

REACTIONS (5)
  - ACUTE HEPATIC FAILURE [None]
  - GASTROINTESTINAL NECROSIS [None]
  - INTENTIONAL OVERDOSE [None]
  - RENAL FAILURE ACUTE [None]
  - RHABDOMYOLYSIS [None]
